FAERS Safety Report 5626786-6 (Version None)
Quarter: 2008Q1

REPORT INFORMATION
  Report Type: 
  Country: None (occurrence: None)
  Receive Date: 20080214
  Receipt Date: 20080204
  Transmission Date: 20080703
  Serious: Yes (Other)
  Sender: FDA-Public Use
  Company Number: GB-PFIZER INC-2008012477

PATIENT
  Age: 35 Year
  Sex: Male

DRUGS (2)
  1. CHANTIX [Suspect]
     Indication: SMOKING CESSATION THERAPY
     Route: 048
     Dates: start: 20080109, end: 20080123
  2. PROPRANOLOL [Concomitant]

REACTIONS (2)
  - FEELING ABNORMAL [None]
  - SUICIDAL IDEATION [None]
